FAERS Safety Report 9322244 (Version 6)
Quarter: 2014Q3

REPORT INFORMATION
  Report Type: Spontaneous
  Country: US (occurrence: US)
  Receive Date: 20130531
  Receipt Date: 20140703
  Transmission Date: 20150326
  Serious: Yes (Other)
  Sender: FDA-Public Use
  Company Number: US-GLAXOSMITHKLINE-A1025241A

PATIENT
  Sex: Male
  Weight: 94.5 kg

DRUGS (1)
  1. AVANDIA [Suspect]
     Active Substance: ROSIGLITAZONE MALEATE
     Indication: DIABETES MELLITUS
     Dosage: 4MG TWICE PER DAY
     Route: 048
     Dates: start: 20040722, end: 2010

REACTIONS (7)
  - Headache [Unknown]
  - Dyspnoea [Unknown]
  - Nasopharyngitis [Unknown]
  - Visual acuity reduced [Unknown]
  - Macular oedema [Unknown]
  - Visual impairment [Unknown]
  - Blindness [Not Recovered/Not Resolved]
